FAERS Safety Report 4391964-3 (Version None)
Quarter: 2004Q3

REPORT INFORMATION
  Report Type: 
  Country: None (occurrence: None)
  Receive Date: 20040701
  Receipt Date: 20040623
  Transmission Date: 20050211
  Serious: Yes (Hospitalization, Other)
  Sender: FDA-Public Use
  Company Number: HQWYE405209APR04

PATIENT
  Age: 56 Year
  Sex: Female
  Weight: 134.25 kg

DRUGS (10)
  1. CYCLOSPORINE [Suspect]
     Indication: PROPHYLAXIS AGAINST TRANSPLANT REJECTION
     Dosage: 75 MG 2X PER 1 DAY, ORAL
     Route: 048
     Dates: start: 20020524
  2. PRILOSEC [Concomitant]
  3. OSCAL (CALCIUM CARBONATE) [Concomitant]
  4. ACETYLSALICYLIC ACID SRT [Concomitant]
  5. TOPROL-XL [Concomitant]
  6. CARDURA [Concomitant]
  7. CAPTOPRIL [Concomitant]
  8. DEMADEX [Concomitant]
  9. LANTUS [Concomitant]
  10. GLYBURIDE [Concomitant]

REACTIONS (4)
  - BLOOD PRESSURE INADEQUATELY CONTROLLED [None]
  - BLOOD PRESSURE INCREASED [None]
  - TRANSIENT ISCHAEMIC ATTACK [None]
  - TREATMENT NONCOMPLIANCE [None]
